FAERS Safety Report 20597372 (Version 1)
Quarter: 2022Q1

REPORT INFORMATION
  Report Type: Report from Study
  Country: CA (occurrence: CA)
  Receive Date: 20220315
  Receipt Date: 20220315
  Transmission Date: 20220424
  Serious: Yes (Hospitalization)
  Sender: FDA-Public Use
  Company Number: CA-BIOGEN-2022BI01103862

PATIENT
  Sex: Female

DRUGS (1)
  1. TECFIDERA [Suspect]
     Active Substance: DIMETHYL FUMARATE
     Indication: Relapsing-remitting multiple sclerosis
     Dosage: MAINTENANCE DOSE
     Route: 048
     Dates: start: 20191219, end: 20200106

REACTIONS (5)
  - Eye irritation [Unknown]
  - Clumsiness [Unknown]
  - Hemianaesthesia [Unknown]
  - Magnetic resonance imaging abnormal [Unknown]
  - Lymphopenia [Unknown]
